FAERS Safety Report 4208507 (Version 14)
Quarter: 2013Q1

REPORT INFORMATION
  Report Type: Spontaneous
  Country: US (occurrence: US)
  Receive Date: 20040813
  Receipt Date: 20130102
  Transmission Date: 20140127
  Serious: Yes (Life-Threatening, Hospitalization, Disabling)
  Sender: FDA-Public Use
  Company Number: US-JNJFOC-20040703897

PATIENT
  Age: 7 Year
  Sex: Female
  Weight: 18.14 kg

DRUGS (4)
  1. CHILDREN^S MOTRIN BERRY ORAL [Suspect]
     Route: 048
  2. CHILDREN^S MOTRIN [Suspect]
     Indication: PYREXIA
     Route: 048
     Dates: start: 20031128, end: 20031130
  3. TYLENOL [Concomitant]
     Dosage: DOSAGE UNKNOWN
  4. MELATONIN [Concomitant]
     Dosage: DOSAGE UNKNOWN
     Dates: end: 20031130

REACTIONS (3)
  - Toxic epidermal necrolysis [Recovered/Resolved with Sequelae]
  - Cerebral haemorrhage [Recovered/Resolved with Sequelae]
  - Corneal opacity [Unknown]
